FAERS Safety Report 14239567 (Version 4)
Quarter: 2018Q2

REPORT INFORMATION
  Report Type: Report from Study
  Country: US (occurrence: US)
  Receive Date: 20171130
  Receipt Date: 20180516
  Transmission Date: 20180711
  Serious: No
  Sender: FDA-Public Use
  Company Number: PHEH2017US038511

PATIENT
  Sex: Female
  Weight: 54.88 kg

DRUGS (1)
  1. COSENTYX [Suspect]
     Active Substance: SECUKINUMAB
     Indication: PSORIATIC ARTHROPATHY
     Dosage: 150 MG, QMO
     Route: 058

REACTIONS (8)
  - Pruritus [Unknown]
  - Rash [Unknown]
  - Injection site bruising [Recovered/Resolved]
  - Respiratory tract congestion [Unknown]
  - Neck pain [Unknown]
  - Headache [Unknown]
  - Nasal congestion [Unknown]
  - Injection site haemorrhage [Unknown]
